FAERS Safety Report 5264869-3 (Version None)
Quarter: 2007Q1

REPORT INFORMATION
  Report Type: 
  Country: None (occurrence: None)
  Receive Date: 20070314
  Receipt Date: 20070228
  Transmission Date: 20070707
  Serious: Yes (Other)
  Sender: FDA-Public Use
  Company Number: US-ELI_LILLY_AND_COMPANY-US200702005699

PATIENT
  Age: 77 Year
  Sex: Female

DRUGS (1)
  1. FORTEO [Suspect]
     Dosage: 20 UG, UNK
     Dates: start: 20060224, end: 20070123

REACTIONS (1)
  - ENDOMETRIAL CANCER [None]
